FAERS Safety Report 6355873-2 (Version None)
Quarter: 2009Q3

REPORT INFORMATION
  Report Type: 
  Country: None (occurrence: None)
  Receive Date: 20090915
  Receipt Date: 20070522
  Transmission Date: 20100115
  Serious: Yes (Other)
  Sender: FDA-Public Use
  Company Number: US-ASTRAZENECA-2007UW00344

PATIENT
  Age: 38 Year
  Sex: Female
  Weight: 113.4 kg

DRUGS (32)
  1. SEROQUEL [Suspect]
     Indication: MAJOR DEPRESSION
     Route: 048
     Dates: start: 20010101, end: 20020101
  2. SEROQUEL [Suspect]
     Route: 048
     Dates: start: 20010101, end: 20020101
  3. SEROQUEL [Suspect]
     Route: 048
     Dates: start: 20010101
  4. SEROQUEL [Suspect]
     Dosage: 25 MG - 100MG
     Route: 048
     Dates: start: 20020219
  5. SEROQUEL [Suspect]
     Route: 048
     Dates: start: 20040101
  6. SEROQUEL [Suspect]
     Route: 048
     Dates: start: 20050101
  7. ZYPREXA [Suspect]
     Indication: MAJOR DEPRESSION
     Dates: start: 20010101
  8. ZYPREXA [Suspect]
     Dates: start: 20020128, end: 20020826
  9. ZYPREXA [Suspect]
     Dates: start: 20020122
  10. ZYPREXA [Suspect]
     Route: 048
     Dates: start: 20040101, end: 20050101
  11. RISPERDAL [Suspect]
     Indication: MAJOR DEPRESSION
  12. RISPERDAL [Suspect]
     Dates: start: 20011220
  13. ABILIFY [Concomitant]
     Dates: start: 20060101
  14. GEODON [Concomitant]
  15. GEODON [Concomitant]
     Route: 048
     Dates: start: 20020101
  16. NAVANE [Concomitant]
  17. THORAZINE [Concomitant]
     Route: 048
  18. CYMBALTA [Concomitant]
     Route: 048
  19. TRILEPTAL [Concomitant]
     Route: 048
  20. XANAX [Concomitant]
     Indication: ANXIETY
     Dates: start: 20011201
  21. DEPAKOTE [Concomitant]
     Dosage: 250 MG - 1000 MG
     Dates: start: 20011223
  22. METFORMIN HCL [Concomitant]
     Route: 048
     Dates: start: 20060912
  23. LIPITOR [Concomitant]
     Dosage: 80 MG HALF - ONE DAILY
     Route: 048
     Dates: start: 20060912
  24. AMBIEN [Concomitant]
     Indication: INSOMNIA
     Dosage: 10 MG HALF TO ONE JUST BEFORE BED, PRN
     Dates: start: 20020122
  25. CLONIDINE [Concomitant]
     Indication: PAIN
     Dosage: 0.1 MG 1 BY MOUTH AT NIGHT, 2-3 DAILY IF TOLERATED
     Dates: start: 20050208
  26. CLONIDINE [Concomitant]
     Indication: INSOMNIA
     Dosage: 0.1 MG 1 BY MOUTH AT NIGHT, 2-3 DAILY IF TOLERATED
     Dates: start: 20050208
  27. CLONIDINE [Concomitant]
     Indication: ANXIETY
     Dosage: 0.1 MG 1 BY MOUTH AT NIGHT, 2-3 DAILY IF TOLERATED
     Dates: start: 20050208
  28. EFFEXOR [Concomitant]
     Route: 048
     Dates: start: 20020101
  29. CELEXA [Concomitant]
     Route: 048
     Dates: start: 20020702
  30. ZANTAC [Concomitant]
     Route: 048
     Dates: start: 20020101
  31. PAXIL [Concomitant]
     Dates: start: 20011210
  32. NEURONTIN [Concomitant]
     Dates: start: 20011220

REACTIONS (12)
  - BLOOD TRIGLYCERIDES INCREASED [None]
  - DIABETES MELLITUS INADEQUATE CONTROL [None]
  - DIABETES WITH HYPEROSMOLARITY [None]
  - HYPERCHOLESTEROLAEMIA [None]
  - HYPERGLYCAEMIA [None]
  - HYPERLIPIDAEMIA [None]
  - IMPAIRED GASTRIC EMPTYING [None]
  - MIXED HYPERLIPIDAEMIA [None]
  - OBESITY [None]
  - SUICIDE ATTEMPT [None]
  - TYPE 2 DIABETES MELLITUS [None]
  - WEIGHT INCREASED [None]
